FAERS Safety Report 18351666 (Version 4)
Quarter: 2021Q1

REPORT INFORMATION
  Report Type: Spontaneous
  Country: PT (occurrence: PT)
  Receive Date: 20201007
  Receipt Date: 20210203
  Transmission Date: 20210419
  Serious: Yes (Hospitalization, Other)
  Sender: FDA-Public Use
  Company Number: PT-AUROBINDO-AUR-APL-2020-048757

PATIENT
  Age: 65 Year
  Sex: Male

DRUGS (3)
  1. AMOXICILLIN+CLAVULANIC ACID FILM?COATED TABLETS [Suspect]
     Active Substance: AMOXICILLIN\CLAVULANIC ACID
     Indication: TONSILLITIS
     Dosage: UNK UNK, 875+125MG, TWO TIMES A DAY
     Route: 065
     Dates: start: 20190521, end: 20190529
  2. DAFALGAN [Suspect]
     Active Substance: ACETAMINOPHEN
     Indication: PRODUCT USED FOR UNKNOWN INDICATION
     Dosage: UNK
     Route: 065
     Dates: start: 2019
  3. NOLOTIL (DEXTROPROPOXYPHENE/METAMIZOLE MAGNESIUM) [Suspect]
     Active Substance: METAMIZOLE\PROPOXYPHENE
     Indication: PRODUCT USED FOR UNKNOWN INDICATION
     Dosage: UNK
     Route: 065

REACTIONS (4)
  - Drug-induced liver injury [Recovered/Resolved]
  - Autoimmune hepatitis [Recovered/Resolved]
  - Hepatitis cholestatic [Recovered/Resolved]
  - Off label use [Unknown]

NARRATIVE: CASE EVENT DATE: 20190612
